FAERS Safety Report 4884350-0 (Version None)
Quarter: 2006Q1

REPORT INFORMATION
  Report Type: 
  Country: None (occurrence: None)
  Receive Date: 20060118
  Receipt Date: 20060111
  Transmission Date: 20060701
  Serious: Yes (Disabling)
  Sender: FDA-Public Use
  Company Number: GB-ABBOTT-06P-167-0321789-00

PATIENT
  Sex: Male

DRUGS (6)
  1. DEPAKOTE [Suspect]
     Indication: PSYCHOTIC DISORDER
     Route: 048
     Dates: start: 20051001, end: 20051216
  2. OLANZAPINE [Concomitant]
     Indication: AGITATION
     Route: 065
     Dates: start: 20021128
  3. CHLORPROMAZINE [Concomitant]
     Indication: RESTLESSNESS
     Route: 065
     Dates: start: 20001103
  4. CITALOPRAM HYDROBROMIDE [Concomitant]
     Indication: DEPRESSION
     Route: 065
     Dates: start: 20011030
  5. PROCYCLIDINE HYDROCHLORIDE 2MG TAB [Concomitant]
     Indication: EXTRAPYRAMIDAL DISORDER
     Route: 065
     Dates: start: 20020130
  6. LORAZEPAM [Concomitant]
     Indication: ABNORMAL BEHAVIOUR
     Route: 065
     Dates: start: 20050110

REACTIONS (1)
  - DYSKINESIA [None]
